FAERS Safety Report 25507153 (Version 2)
Quarter: 2025Q3

REPORT INFORMATION
  Report Type: Other
  Country: CA (occurrence: CA)
  Receive Date: 20250703
  Receipt Date: 20250807
  Transmission Date: 20251020
  Serious: Yes (Hospitalization)
  Sender: APOTEX
  Company Number: CA-APOTEX-2025AP009007

PATIENT
  Age: 60 Year
  Sex: Male

DRUGS (1)
  1. LENALIDOMIDE [Suspect]
     Active Substance: LENALIDOMIDE
     Indication: Plasma cell myeloma
     Dosage: 25 MILLIGRAM, QD
     Route: 048
     Dates: start: 20250210

REACTIONS (1)
  - Hospitalisation [Unknown]

NARRATIVE: CASE EVENT DATE: 20250601
